FAERS Safety Report 6111312-8 (Version None)
Quarter: 2009Q1

REPORT INFORMATION
  Report Type: 
  Country: None (occurrence: None)
  Receive Date: 20090309
  Receipt Date: 20090225
  Transmission Date: 20090719
  Serious: Yes (Death)
  Sender: FDA-Public Use
  Company Number: MPS1-1000179

PATIENT
  Age: 18 Year
  Sex: Female
  Weight: 39.9 kg

DRUGS (4)
  1. ALDURAZYME [Suspect]
     Indication: MUCOPOLYSACCHARIDOSIS I
     Dosage: 4000 U, QW, INTRAVENOUS
     Route: 042
     Dates: start: 20031201, end: 20090201
  2. VENTOLIN [Concomitant]
  3. BECONASE [Concomitant]
  4. BACLOFEN [Concomitant]

REACTIONS (2)
  - DISEASE PROGRESSION [None]
  - MITRAL VALVE REPLACEMENT [None]
